FAERS Safety Report 25183078 (Version 1)
Quarter: 2025Q2

REPORT INFORMATION
  Report Type: Report from Study
  Country: US (occurrence: US)
  Receive Date: 20250410
  Receipt Date: 20250410
  Transmission Date: 20250716
  Serious: Yes (Death, Other)
  Sender: ACADIA PHARMACEUTICALS
  Company Number: US-ACADIA PHARMACEUTICALS INC.-ACA-2025-PIM-003926

PATIENT
  Age: 85 Year
  Sex: Male

DRUGS (8)
  1. NUPLAZID [Suspect]
     Active Substance: PIMAVANSERIN TARTRATE
     Indication: Parkinson^s disease
     Dosage: 34 MILLIGRAM, QD
     Route: 048
     Dates: start: 20210625
  2. ELIQUIS [Concomitant]
     Active Substance: APIXABAN
  3. QUETIAPINE [Concomitant]
     Active Substance: QUETIAPINE
  4. CLINDAMYCIN [Concomitant]
     Active Substance: CLINDAMYCIN
  5. CALCIUM [Concomitant]
     Active Substance: CALCIUM
  6. TAMSULOSIN [Concomitant]
     Active Substance: TAMSULOSIN
  7. CARBIDOPA AND LEVODOPA [Concomitant]
     Active Substance: CARBIDOPA\LEVODOPA
  8. ZINC SULFATE [Concomitant]
     Active Substance: ZINC SULFATE

REACTIONS (1)
  - Death [Fatal]

NARRATIVE: CASE EVENT DATE: 20250327
